FAERS Safety Report 6530876-3 (Version None)
Quarter: 2010Q1

REPORT INFORMATION
  Report Type: 
  Country: None (occurrence: None)
  Receive Date: 20100108
  Receipt Date: 20090504
  Transmission Date: 20100710
  Serious: No
  Sender: FDA-Public Use
  Company Number: A0782344A

PATIENT
  Age: 74 Year
  Sex: Male

DRUGS (6)
  1. LOVAZA [Suspect]
     Indication: DRUG USE FOR UNKNOWN INDICATION
     Dosage: 2G PER DAY
     Route: 048
     Dates: start: 20070101
  2. ZOCOR [Concomitant]
  3. OMEPRAZOLE [Concomitant]
  4. LEXAPRO [Concomitant]
  5. ASPIRIN [Concomitant]
  6. VITAMINS [Concomitant]

REACTIONS (2)
  - BLOOD CHOLESTEROL ABNORMAL [None]
  - HIGH DENSITY LIPOPROTEIN INCREASED [None]
